APPROVED DRUG PRODUCT: IOPAMIDOL-200
Active Ingredient: IOPAMIDOL
Strength: 41%
Dosage Form/Route: INJECTABLE;INJECTION
Application: A074898 | Product #001
Applicant: HOSPIRA WORLDWIDE, INC
Approved: Dec 30, 1997 | RLD: No | RS: No | Type: DISCN